FAERS Safety Report 6588136-0 (Version None)
Quarter: 2010Q1

REPORT INFORMATION
  Report Type: 
  Country: None (occurrence: None)
  Receive Date: 20100217
  Receipt Date: 20100217
  Transmission Date: 20100710
  Serious: Yes (Hospitalization)
  Sender: FDA-Public Use
  Company Number: None

PATIENT
  Sex: Male
  Weight: 79.38 kg

DRUGS (3)
  1. MERCAPTOPURINE [Suspect]
     Dosage: 336 MG
  2. METHOTREXATE [Suspect]
     Dosage: 440 MG
  3. DEXAMETHASONE [Suspect]
     Dosage: 336 MG

REACTIONS (26)
  - ALANINE AMINOTRANSFERASE INCREASED [None]
  - ASPARTATE AMINOTRANSFERASE INCREASED [None]
  - BONE DISORDER [None]
  - CULTURE WOUND POSITIVE [None]
  - DIARRHOEA [None]
  - ERYTHEMA [None]
  - ESCHERICHIA INFECTION [None]
  - FALL [None]
  - FEELING HOT [None]
  - HEAD INJURY [None]
  - HEADACHE [None]
  - HYPERBILIRUBINAEMIA [None]
  - JOINT SWELLING [None]
  - MUSCULOSKELETAL CHEST PAIN [None]
  - MUSCULOSKELETAL PAIN [None]
  - NAUSEA [None]
  - NECK PAIN [None]
  - PLEURITIC PAIN [None]
  - PNEUMONIA [None]
  - PNEUMONIA FUNGAL [None]
  - ROAD TRAFFIC ACCIDENT [None]
  - SPLENIC INFARCTION [None]
  - SYNCOPE [None]
  - TRANSAMINASES INCREASED [None]
  - VARICELLA VIRUS TEST POSITIVE [None]
  - VOMITING [None]
